FAERS Safety Report 21738860 (Version 4)
Quarter: 2023Q1

REPORT INFORMATION
  Report Type: Spontaneous
  Country: US (occurrence: US)
  Receive Date: 20221216
  Receipt Date: 20230204
  Transmission Date: 20230418
  Serious: No
  Sender: FDA-Public Use
  Company Number: US-UNITED THERAPEUTICS-UNT-2022-029796

PATIENT
  Sex: Female
  Weight: 99.32 kg

DRUGS (7)
  1. REMODULIN [Suspect]
     Active Substance: TREPROSTINIL
     Indication: Pulmonary arterial hypertension
     Dosage: 0.067 ?G/KG, CONTINUING (SELF-FILLED WITH 3ML PER CASSETTE AT PUMP RATE 44 MCL/HOUR)
     Route: 058
     Dates: start: 2022
  2. REMODULIN [Suspect]
     Active Substance: TREPROSTINIL
     Dosage: UNK, CONTINUING
     Route: 058
     Dates: start: 2022
  3. REMODULIN [Suspect]
     Active Substance: TREPROSTINIL
     Dosage: 0.069 ?G/KG, CONTINUING (SELF-FILLED WITH 3 ML PER CASSETTE AT PUMP RATE 45 MCL/HOUR)
     Route: 058
  4. REMODULIN [Suspect]
     Active Substance: TREPROSTINIL
     Dosage: UNK, CONTINUING
     Route: 058
     Dates: start: 20220114
  5. REMODULIN [Suspect]
     Active Substance: TREPROSTINIL
     Indication: Pulmonary arterial hypertension
     Dosage: 0.067 ?G/KG, CONTINUING  (PHARMACY-FILLED WITH 3ML PER CASSETTE AT PUMP RATE 44 MCL/HOUR)
     Route: 058
     Dates: start: 2022
  6. OPSUMIT [Concomitant]
     Active Substance: MACITENTAN
     Indication: Product used for unknown indication
     Dosage: UNK
     Route: 065
  7. SILDENAFIL CITRATE [Concomitant]
     Active Substance: SILDENAFIL CITRATE
     Indication: Product used for unknown indication
     Dosage: UNK
     Route: 065

REACTIONS (8)
  - Laryngitis [Unknown]
  - Oedema peripheral [Unknown]
  - Device wireless communication issue [Unknown]
  - Aphonia [Unknown]
  - Oropharyngeal pain [Unknown]
  - Device infusion issue [Recovered/Resolved]
  - Device failure [Unknown]
  - Needle issue [Unknown]

NARRATIVE: CASE EVENT DATE: 20220101
